FAERS Safety Report 15311250 (Version 1)
Quarter: 2018Q3

REPORT INFORMATION
  Report Type: Spontaneous
  Country: US (occurrence: US)
  Receive Date: 20180823
  Receipt Date: 20180823
  Transmission Date: 20181010
  Serious: Yes (Death, Hospitalization, Other)
  Sender: FDA-Public Use
  Company Number: US-IBIGEN-2018.04732

PATIENT
  Age: 23 Year
  Sex: Male

DRUGS (6)
  1. UNK [Suspect]
     Active Substance: UNSPECIFIED INGREDIENT
  2. UNK [Suspect]
     Active Substance: UNSPECIFIED INGREDIENT
     Indication: ANTIBIOTIC PROPHYLAXIS
  3. UNK [Suspect]
     Active Substance: UNSPECIFIED INGREDIENT
     Indication: NEPHROTIC SYNDROME
     Dosage: 900 MG ON HOSPITAL DAY 10, 19 AND 26
     Route: 042
  4. UNK [Suspect]
     Active Substance: UNSPECIFIED INGREDIENT
  5. UNK [Suspect]
     Active Substance: UNSPECIFIED INGREDIENT
  6. UNK [Suspect]
     Active Substance: UNSPECIFIED INGREDIENT

REACTIONS (3)
  - Condition aggravated [Fatal]
  - Drug ineffective [Fatal]
  - Sepsis [Fatal]
